FAERS Safety Report 9524021 (Version 1)
Quarter: 2013Q1

REPORT INFORMATION
  Report Type: Spontaneous
  Country: US (occurrence: None)
  Receive Date: 20130313
  Receipt Date: 20130313
  Transmission Date: 20140127
  Serious: No
  Sender: FDA-Public Use
  Company Number: 1000040041

PATIENT
  Age: 55 Year
  Sex: Male

DRUGS (5)
  1. SAVELLA [Suspect]
     Indication: FIBROMYALGIA
     Dosage: 12.5 MG (12.5 MG, 1 IN 1 D), ORAL
     Route: 048
     Dates: start: 20121025, end: 20121025
  2. TRAMADOL (TRAMADOL) (25 MILLIGRAM, TABLETS) (TRAMADOL) [Concomitant]
  3. VICODIN (ACETAMINOPHEN, HYDROCODONE) (ACETAMINOPHEN, HYDROCODONE) [Concomitant]
  4. ELAVIL (ELAVIL) (ELAVIL) [Concomitant]
  5. XANAX (ALPRAZOLM) (ALPRAZOLAM) [Concomitant]

REACTIONS (3)
  - Headache [None]
  - Constipation [None]
  - Insomnia [None]
